FAERS Safety Report 21209870 (Version 2)
Quarter: 2022Q3

REPORT INFORMATION
  Report Type: Report from Study
  Country: US (occurrence: US)
  Receive Date: 20220813
  Receipt Date: 20220816
  Transmission Date: 20221026
  Serious: Yes (Hospitalization)
  Sender: FDA-Public Use
  Company Number: US-ALNYLAM PHARMACEUTICALS, INC.-ALN-2022-002666

PATIENT

DRUGS (2)
  1. ONPATTRO [Suspect]
     Active Substance: PATISIRAN SODIUM
     Indication: Hereditary neuropathic amyloidosis
     Dosage: 27.9 MILLIGRAM, Q3W
     Route: 042
     Dates: start: 20220718, end: 20220718
  2. ONPATTRO [Suspect]
     Active Substance: PATISIRAN SODIUM
     Dosage: 279 MILLIGRAM, Q3W
     Route: 065
     Dates: start: 20220609, end: 20220609

REACTIONS (4)
  - Diarrhoea [Unknown]
  - Nausea [Unknown]
  - Dehydration [Unknown]
  - Incorrect product administration duration [Unknown]

NARRATIVE: CASE EVENT DATE: 20220718
